FAERS Safety Report 6166225-2 (Version None)
Quarter: 2009Q2

REPORT INFORMATION
  Report Type: 
  Country: None (occurrence: None)
  Receive Date: 20090424
  Receipt Date: 20090415
  Transmission Date: 20091009
  Serious: Yes (Hospitalization)
  Sender: FDA-Public Use
  Company Number: PHHY2009MX14540

PATIENT
  Age: 67 Year
  Sex: Female

DRUGS (1)
  1. STALEVO 100 [Suspect]
     Indication: PARKINSON'S DISEASE
     Dosage: 2 TABLETS/ DAY
     Route: 048
     Dates: start: 20080101

REACTIONS (3)
  - ANOREXIA [None]
  - FALL [None]
  - HIP SURGERY [None]
